FAERS Safety Report 4976313-1 (Version None)
Quarter: 2006Q2

REPORT INFORMATION
  Report Type: 
  Country: None (occurrence: None)
  Receive Date: 20060419
  Receipt Date: 20060404
  Transmission Date: 20061013
  Serious: Yes (Death, Hospitalization)
  Sender: FDA-Public Use
  Company Number: DEWYE531404APR06

PATIENT
  Sex: Female

DRUGS (12)
  1. ENBREL [Suspect]
     Indication: RHEUMATOID ARTHRITIS
     Route: 058
     Dates: start: 20020501, end: 20051128
  2. ENBREL [Suspect]
  3. ARAVA [Concomitant]
     Indication: RHEUMATOID ARTHRITIS
     Dosage: UNKNOWN
     Route: 065
     Dates: start: 20020601, end: 20020701
  4. ARAVA [Concomitant]
     Route: 065
     Dates: start: 20020801
  5. DECORTIN-H [Concomitant]
     Indication: RHEUMATOID ARTHRITIS
     Route: 065
     Dates: end: 20051201
  6. DECORTIN-H [Concomitant]
     Route: 065
     Dates: start: 20051201
  7. INDOMETHACIN [Concomitant]
  8. BELOC ZOK [Concomitant]
  9. FUROSEMIDE [Concomitant]
  10. NEXIUM [Concomitant]
  11. PANZYTRAT [Concomitant]
  12. LYRICA [Concomitant]

REACTIONS (3)
  - CARDIAC FAILURE ACUTE [None]
  - FALL [None]
  - HUMERUS FRACTURE [None]
